FAERS Safety Report 23283736 (Version 2)
Quarter: 2024Q1

REPORT INFORMATION
  Report Type: Spontaneous
  Country: US (occurrence: US)
  Receive Date: 20231211
  Receipt Date: 20240122
  Transmission Date: 20240410
  Serious: Yes (Death)
  Sender: FDA-Public Use
  Company Number: US-PFIZER INC-PV202300196400

PATIENT
  Age: 61 Year
  Sex: Female

DRUGS (12)
  1. IBRANCE [Suspect]
     Active Substance: PALBOCICLIB
     Indication: Breast cancer metastatic
     Dosage: 75 MG, 1X/DAY
     Route: 048
     Dates: start: 20231115
  2. IBRANCE [Suspect]
     Active Substance: PALBOCICLIB
     Dosage: 100 MG, 1X/DAY
     Route: 048
     Dates: start: 202312
  3. LETROZOLE [Concomitant]
     Active Substance: LETROZOLE
     Dosage: UNK
  4. ELIQUIS [Concomitant]
     Active Substance: APIXABAN
     Dosage: UNK
  5. HYDROCODONE BITARTRATE AND ACETAMINOPHEN [Concomitant]
     Active Substance: ACETAMINOPHEN\HYDROCODONE BITARTRATE
     Dosage: UNK
  6. ONDANSETRON [Concomitant]
     Active Substance: ONDANSETRON
     Dosage: UNK
  7. VITAMIN D2 [Concomitant]
     Active Substance: ERGOCALCIFEROL
     Dosage: UNK
  8. TYLENOL [Concomitant]
     Active Substance: ACETAMINOPHEN
     Dosage: UNK
  9. HYDROCHLOROTHIAZIDE [Concomitant]
     Active Substance: HYDROCHLOROTHIAZIDE
     Dosage: UNK
  10. KEPPRA [Concomitant]
     Active Substance: LEVETIRACETAM
     Dosage: UNK
  11. OXYCODONE [Concomitant]
     Active Substance: OXYCODONE
     Dosage: UNK
  12. DEXAMETHASONE [Concomitant]
     Active Substance: DEXAMETHASONE
     Dosage: UNK

REACTIONS (3)
  - Death [Fatal]
  - Fatigue [Not Recovered/Not Resolved]
  - Nausea [Not Recovered/Not Resolved]

NARRATIVE: CASE EVENT DATE: 20240110
